FAERS Safety Report 10207037 (Version 1)
Quarter: 2014Q2

REPORT INFORMATION
  Report Type: Spontaneous
  Country: CA (occurrence: CA)
  Receive Date: 20140530
  Receipt Date: 20140530
  Transmission Date: 20141212
  Serious: Yes (Other)
  Sender: FDA-Public Use
  Company Number: CA-009507513-1405CAN015550

PATIENT
  Sex: 0

DRUGS (1)
  1. COPPERTONE KIDS CONTINUOUS SPRAY SPF-60 [Suspect]
     Route: 065

REACTIONS (1)
  - Hypersensitivity [Unknown]
